FAERS Safety Report 9906257 (Version 1)
Quarter: 2014Q1

REPORT INFORMATION
  Report Type: Spontaneous
  Country: US (occurrence: US)
  Receive Date: 20140218
  Receipt Date: 20140218
  Transmission Date: 20141002
  Serious: No
  Sender: FDA-Public Use
  Company Number: US-B.I. PHARMACEUTICALS,INC./RIDGEFIELD-2014-BI-05375BP

PATIENT
  Age: 11 Year
  Sex: Male
  Weight: 52 kg

DRUGS (1)
  1. ZANTAC (RANITIDINE HYDROCHLORIDE) [Suspect]
     Indication: ABDOMINAL PAIN UPPER
     Dosage: 300 MG
     Route: 048
     Dates: start: 201311, end: 201311

REACTIONS (3)
  - Headache [Not Recovered/Not Resolved]
  - Drug administered to patient of inappropriate age [Recovered/Resolved]
  - Off label use [Unknown]
